FAERS Safety Report 9024360 (Version 2)
Quarter: 2013Q2

REPORT INFORMATION
  Report Type: Spontaneous
  Country: US (occurrence: US)
  Receive Date: 20130121
  Receipt Date: 20130515
  Transmission Date: 20140414
  Serious: Yes (Hospitalization)
  Sender: FDA-Public Use
  Company Number: US-BAYER-2013-006786

PATIENT
  Age: 23 Year
  Sex: Female
  Weight: 90.7 kg

DRUGS (13)
  1. YAZ [Suspect]
     Indication: ACNE
     Dosage: UNK
     Dates: start: 200909, end: 201008
  2. GIANVI [Suspect]
     Indication: ACNE
     Dosage: UNK
     Dates: start: 20101001, end: 20110110
  3. AMOXICILLIN [Concomitant]
     Dosage: UNK
     Dates: start: 201012
  4. ADVIL [Concomitant]
     Dosage: UNK
     Dates: start: 2002
  5. LEXAPRO [Concomitant]
     Indication: OBSESSIVE-COMPULSIVE DISORDER
     Dosage: 20 MG, QD
     Route: 048
     Dates: start: 2010
  6. LEXAPRO [Concomitant]
     Indication: DEPRESSION
  7. GEODON [Concomitant]
     Indication: OBSESSIVE-COMPULSIVE DISORDER
     Dosage: UNK
     Dates: start: 2010, end: 2012
  8. GEODON [Concomitant]
     Indication: DEPRESSION
  9. LUVOX [Concomitant]
     Indication: OBSESSIVE-COMPULSIVE DISORDER
     Dosage: UNK
     Dates: start: 2008, end: 2010
  10. FLUVIRIN [INFLUENZA VACCINE INACTIVATED] [Concomitant]
     Dosage: UNK
     Dates: start: 20101025
  11. ABILIFY [Concomitant]
     Indication: OBSESSIVE-COMPULSIVE DISORDER
     Dosage: UNK
     Dates: start: 2008, end: 2010
  12. RISPERDAL [Concomitant]
     Dosage: 0.5 MG, QD
     Route: 048
  13. KLONOPIN [Concomitant]
     Dosage: 0.5 MG, BID
     Route: 048

REACTIONS (8)
  - Pulmonary embolism [None]
  - Injury [None]
  - Emotional distress [None]
  - Depression [None]
  - Fear of death [None]
  - Nervousness [None]
  - Pain [None]
  - Discomfort [None]
